FAERS Safety Report 5229932-1 (Version None)
Quarter: 2007Q1

REPORT INFORMATION
  Report Type: 
  Country: None (occurrence: None)
  Receive Date: 20070206
  Receipt Date: 20060713
  Transmission Date: 20070707
  Serious: No
  Sender: FDA-Public Use
  Company Number: US-GLAXOSMITHKLINE-A0611148A

PATIENT
  Age: 84 Year
  Sex: Male

DRUGS (16)
  1. PAROXETINE HCL [Suspect]
     Indication: DEPRESSION
     Dosage: 20MG PER DAY
     Route: 048
  2. PAXIL [Suspect]
     Indication: DEPRESSION
     Dosage: 40MG PER DAY
     Route: 048
  3. WELLBUTRIN [Suspect]
     Indication: DEPRESSION
     Route: 048
  4. METFORMIN HCL [Concomitant]
  5. GLYBURIDE [Concomitant]
  6. PROSCAR [Concomitant]
  7. LISINOPRIL [Concomitant]
  8. HYDROCHLOROTHIAZIDE [Concomitant]
  9. SIMVASTATIN [Concomitant]
  10. OMEPRAZOLE [Concomitant]
  11. PRIMIDONE [Concomitant]
  12. TRAVATAN [Concomitant]
  13. M.V.I. [Concomitant]
  14. ALBUTEROL [Concomitant]
  15. CALCIUM [Concomitant]
  16. ASPIRIN [Concomitant]

REACTIONS (2)
  - DRUG INEFFECTIVE [None]
  - TENSION [None]
